FAERS Safety Report 15639429 (Version 1)
Quarter: 2018Q4

REPORT INFORMATION
  Report Type: Spontaneous
  Country: US (occurrence: US)
  Receive Date: 20181114
  Receipt Date: 20181114
  Transmission Date: 20190205
  Serious: No
  Sender: FDA-Public Use
  Company Number: None

PATIENT
  Age: 55 Year
  Sex: Male

DRUGS (1)
  1. ZORTRESS [Suspect]
     Active Substance: EVEROLIMUS
     Route: 048
     Dates: start: 201711

REACTIONS (4)
  - Myalgia [None]
  - Nasopharyngitis [None]
  - Influenza [None]
  - Infection masked [None]

NARRATIVE: CASE EVENT DATE: 20181113
